FAERS Safety Report 9638721 (Version 1)
Quarter: 2013Q4

REPORT INFORMATION
  Report Type: Spontaneous
  Country: CO (occurrence: CO)
  Receive Date: 20131022
  Receipt Date: 20131022
  Transmission Date: 20140711
  Serious: Yes (Other)
  Sender: FDA-Public Use
  Company Number: CO-UCBSA-100227

PATIENT
  Age: 54 Year
  Sex: Female

DRUGS (1)
  1. VIMPAT [Suspect]
     Indication: EPILEPSY
     Route: 048
     Dates: start: 20130824

REACTIONS (1)
  - Transaminases increased [Unknown]
